FAERS Safety Report 8547469-9 (Version None)
Quarter: 2012Q3

REPORT INFORMATION
  Report Type: 
  Country: None (occurrence: None)
  Receive Date: 20120727
  Receipt Date: 20120427
  Transmission Date: 20120928
  Serious: No
  Sender: FDA-Public Use
  Company Number: US-ASTRAZENECA-2012SE26073

PATIENT
  Age: 49 Year
  Sex: Male

DRUGS (1)
  1. SEROQUEL [Suspect]
     Route: 048

REACTIONS (4)
  - GENERAL PHYSICAL HEALTH DETERIORATION [None]
  - THERAPEUTIC RESPONSE DECREASED [None]
  - FEELING ABNORMAL [None]
  - DRUG PRESCRIBING ERROR [None]
